FAERS Safety Report 7687042-8 (Version None)
Quarter: 2011Q3

REPORT INFORMATION
  Report Type: 
  Country: None (occurrence: None)
  Receive Date: 20110816
  Receipt Date: 20110802
  Transmission Date: 20111222
  Serious: Yes (Hospitalization, Other)
  Sender: FDA-Public Use
  Company Number: CH-ASTRAZENECA-2009SE15253

PATIENT
  Age: 30 Year
  Sex: Male

DRUGS (8)
  1. SEROQUEL [Suspect]
     Route: 048
     Dates: start: 20090326
  2. RITALIN [Suspect]
     Route: 048
     Dates: start: 20070101, end: 20090301
  3. METHADONE HCL [Suspect]
     Route: 048
     Dates: start: 20090227
  4. IMOVANE [Concomitant]
     Route: 048
     Dates: start: 20050101, end: 20090406
  5. SEROQUEL [Suspect]
     Route: 048
     Dates: start: 20070101, end: 20090325
  6. ESCITALOPRAM [Suspect]
     Route: 048
     Dates: start: 20080101
  7. RITALIN [Suspect]
     Route: 048
     Dates: start: 20090302, end: 20090304
  8. VALIUM [Suspect]
     Route: 048
     Dates: start: 20070101

REACTIONS (5)
  - VENTRICULAR TACHYCARDIA [None]
  - SYNCOPE [None]
  - WEIGHT DECREASED [None]
  - ELECTROCARDIOGRAM QT PROLONGED [None]
  - ENDOCARDITIS [None]
